FAERS Safety Report 5662666-8 (Version None)
Quarter: 2008Q1

REPORT INFORMATION
  Report Type: 
  Country: None (occurrence: None)
  Receive Date: 20080313
  Receipt Date: 20080303
  Transmission Date: 20080703
  Serious: Yes (Other)
  Sender: FDA-Public Use
  Company Number: SA-ROCHE-550673

PATIENT
  Age: 26 Year
  Sex: Male
  Weight: 65 kg

DRUGS (1)
  1. ROACCUTANE [Suspect]
     Route: 048
     Dates: start: 20080218, end: 20080226

REACTIONS (4)
  - DRY EYE [None]
  - DRY SKIN [None]
  - EYE IRRITATION [None]
  - VISUAL DISTURBANCE [None]
